FAERS Safety Report 7805128-1 (Version None)
Quarter: 2011Q4

REPORT INFORMATION
  Report Type: 
  Country: None (occurrence: None)
  Receive Date: 20111010
  Receipt Date: 20110928
  Transmission Date: 20120403
  Serious: Yes (Hospitalization, Other)
  Sender: FDA-Public Use
  Company Number: PHHY2011DE32543

PATIENT
  Sex: Male
  Weight: 120 kg

DRUGS (3)
  1. SANDOSTATIN LAR [Suspect]
     Dosage: 20 MG, UNK
     Route: 030
     Dates: start: 20110414
  2. SANDOSTATIN LAR [Suspect]
     Indication: ACROMEGALY
     Dosage: 20 MG, UNK
     Route: 030
     Dates: start: 20101001
  3. SANDOSTATIN LAR [Suspect]
     Dosage: 20 MG, UNK
     Route: 030
     Dates: start: 20110317

REACTIONS (10)
  - HAEMORRHOIDS [None]
  - DYSGEUSIA [None]
  - SHOCK HYPOGLYCAEMIC [None]
  - FAECES DISCOLOURED [None]
  - ALOPECIA [None]
  - HYPERHIDROSIS [None]
  - TREMOR [None]
  - DIARRHOEA [None]
  - NAUSEA [None]
  - JAW DISORDER [None]
